FAERS Safety Report 20020699 (Version 1)
Quarter: 2021Q4

REPORT INFORMATION
  Report Type: Spontaneous
  Country: US (occurrence: US)
  Receive Date: 20211101
  Receipt Date: 20211101
  Transmission Date: 20220303
  Serious: Yes (Other)
  Sender: FDA-Public Use
  Company Number: US-NOVARTISPH-NVSC2021US243808

PATIENT
  Age: 14 Year
  Sex: Male

DRUGS (3)
  1. DIFLUPREDNATE [Suspect]
     Active Substance: DIFLUPREDNATE
     Indication: Product used for unknown indication
     Dosage: UNK, Q6H (4 TIMES A DAY)
     Route: 061
  2. DIFLUPREDNATE [Suspect]
     Active Substance: DIFLUPREDNATE
     Dosage: UNK, BID (2 TIMES A DAY)
     Route: 065
  3. TOBRAMYCIN [Concomitant]
     Active Substance: TOBRAMYCIN
     Indication: Product used for unknown indication
     Dosage: UNK, Q8H (3 TIMES A DAY)
     Route: 065

REACTIONS (1)
  - Infectious crystalline keratopathy [Recovering/Resolving]
